FAERS Safety Report 4391710-3 (Version None)
Quarter: 2004Q3

REPORT INFORMATION
  Report Type: 
  Country: None (occurrence: None)
  Receive Date: 20040702
  Receipt Date: 20040402
  Transmission Date: 20050211
  Serious: Yes (Other)
  Sender: FDA-Public Use
  Company Number: 2004UW06674

PATIENT
  Age: 62 Year
  Sex: Female
  Weight: 53.0709 kg

DRUGS (5)
  1. CRESTOR [Suspect]
     Indication: HYPERCHOLESTEROLAEMIA
     Dosage: 5 MG QD PO
     Route: 048
     Dates: start: 20040301
  2. CLONIDINE [Concomitant]
  3. ALDACTONE [Concomitant]
  4. PREMARIN [Concomitant]
  5. WELCHOL [Concomitant]

REACTIONS (3)
  - HEADACHE [None]
  - HYPERTENSION [None]
  - PARAESTHESIA [None]
